FAERS Safety Report 8189682-9 (Version None)
Quarter: 2012Q1

REPORT INFORMATION
  Report Type: 
  Country: None (occurrence: None)
  Receive Date: 20120307
  Receipt Date: 20120229
  Transmission Date: 20120608
  Serious: Yes (Hospitalization)
  Sender: FDA-Public Use
  Company Number: CH-COVIDIEN/TYCO HEALTHCARE/MALLINCKRODT-T201200797

PATIENT
  Sex: Male

DRUGS (3)
  1. RANITIDINE [Concomitant]
     Indication: PREMEDICATION
     Dosage: 50 MG, SINGLE
     Dates: start: 20120228, end: 20120228
  2. OPTIRAY 160 [Suspect]
     Indication: COMPUTERISED TOMOGRAM
     Dosage: 125 ML, SINGLE
     Route: 042
     Dates: start: 20120228, end: 20120228
  3. CLEMASTINE [Concomitant]
     Indication: PREMEDICATION
     Dosage: 2 MG, SINGLE
     Dates: start: 20120228, end: 20120228

REACTIONS (4)
  - SWELLING FACE [None]
  - RASH PUSTULAR [None]
  - EYE SWELLING [None]
  - URTICARIA [None]
